FAERS Safety Report 19890281 (Version 6)
Quarter: 2024Q3

REPORT INFORMATION
  Report Type: Spontaneous
  Country: CA (occurrence: CA)
  Receive Date: 20210928
  Receipt Date: 20240822
  Transmission Date: 20241017
  Serious: Yes (Life-Threatening, Hospitalization, Other)
  Sender: COVIS PHARMA
  Company Number: CA-ASTRAZENECA-2020SF02347

PATIENT
  Age: 72 Year
  Sex: Male

DRUGS (179)
  1. OMNARIS [Suspect]
     Active Substance: CICLESONIDE
     Dosage: SPRAY METERED DOSE
     Route: 055
  2. OMNARIS [Suspect]
     Active Substance: CICLESONIDE
     Dosage: SPRAY METERED DOSE
     Route: 055
  3. OMNARIS [Suspect]
     Active Substance: CICLESONIDE
  4. OMNARIS [Suspect]
     Active Substance: CICLESONIDE
     Dosage: SPRAY METERED DOSE
  5. OMNARIS [Suspect]
     Active Substance: CICLESONIDE
  6. BUDESONIDE [Suspect]
     Active Substance: BUDESONIDE
     Dosage: UNKNOWN
     Route: 055
  7. BUDESONIDE [Suspect]
     Active Substance: BUDESONIDE
     Dosage: UNKNOWN
     Route: 055
  8. BUDESONIDE [Suspect]
     Active Substance: BUDESONIDE
     Dosage: UNK UNKNOWN
  9. BUDESONIDE [Suspect]
     Active Substance: BUDESONIDE
     Dosage: UNKNOWN
     Route: 048
  10. AMOXICILLIN [Suspect]
     Active Substance: AMOXICILLIN
  11. ESCITALOPRAM OXALATE [Suspect]
     Active Substance: ESCITALOPRAM OXALATE
     Dosage: 10 MILLIGRAM, QD
  12. ESCITALOPRAM OXALATE [Suspect]
     Active Substance: ESCITALOPRAM OXALATE
  13. ESCITALOPRAM OXALATE [Suspect]
     Active Substance: ESCITALOPRAM OXALATE
  14. ESCITALOPRAM OXALATE [Suspect]
     Active Substance: ESCITALOPRAM OXALATE
  15. ESCITALOPRAM OXALATE [Suspect]
     Active Substance: ESCITALOPRAM OXALATE
  16. ESCITALOPRAM OXALATE [Suspect]
     Active Substance: ESCITALOPRAM OXALATE
  17. ESCITALOPRAM OXALATE [Suspect]
     Active Substance: ESCITALOPRAM OXALATE
  18. ESCITALOPRAM OXALATE [Suspect]
     Active Substance: ESCITALOPRAM OXALATE
  19. ESCITALOPRAM OXALATE [Suspect]
     Active Substance: ESCITALOPRAM OXALATE
  20. ESCITALOPRAM OXALATE [Suspect]
     Active Substance: ESCITALOPRAM OXALATE
  21. DOXAZOSIN MESYLATE [Suspect]
     Active Substance: DOXAZOSIN MESYLATE
     Dosage: 4 MILLIGRAM4.0MG UNKNOWN
  22. DOXAZOSIN MESYLATE [Suspect]
     Active Substance: DOXAZOSIN MESYLATE
     Dosage: 5.0MG UNKNOWN
  23. DOXAZOSIN MESYLATE [Suspect]
     Active Substance: DOXAZOSIN MESYLATE
     Dosage: 0.5MG UNKNOWN
  24. DOXAZOSIN MESYLATE [Suspect]
     Active Substance: DOXAZOSIN MESYLATE
     Dosage: 4.0MG UNKNOWN
  25. DOXAZOSIN MESYLATE [Suspect]
     Active Substance: DOXAZOSIN MESYLATE
     Dosage: 12.5 M2 UNKNOWN
  26. DOXAZOSIN MESYLATE [Suspect]
     Active Substance: DOXAZOSIN MESYLATE
     Dosage: 5.0MG UNKNOWN
  27. DOXAZOSIN MESYLATE [Suspect]
     Active Substance: DOXAZOSIN MESYLATE
     Dosage: 4.0MG UNKNOWN
  28. DOXAZOSIN MESYLATE [Suspect]
     Active Substance: DOXAZOSIN MESYLATE
     Dosage: 4.0MG UNKNOWN
  29. DOXAZOSIN MESYLATE [Suspect]
     Active Substance: DOXAZOSIN MESYLATE
     Dosage: 4.0MG UNKNOWN
  30. DOXAZOSIN MESYLATE [Suspect]
     Active Substance: DOXAZOSIN MESYLATE
     Dosage: UNKNOWN
  31. DOXAZOSIN MESYLATE [Suspect]
     Active Substance: DOXAZOSIN MESYLATE
     Dosage: UNKNOWN
  32. DOXAZOSIN MESYLATE [Suspect]
     Active Substance: DOXAZOSIN MESYLATE
     Dosage: UNKNOWN
  33. DOXAZOSIN MESYLATE [Suspect]
     Active Substance: DOXAZOSIN MESYLATE
     Dosage: 0.5MG UNKNOWN
  34. DOXAZOSIN MESYLATE [Suspect]
     Active Substance: DOXAZOSIN MESYLATE
     Dosage: UNKNOWN
  35. DOXAZOSIN MESYLATE [Suspect]
     Active Substance: DOXAZOSIN MESYLATE
     Dosage: 5.0MG UNKNOWN
  36. DOXAZOSIN MESYLATE [Suspect]
     Active Substance: DOXAZOSIN MESYLATE
     Dosage: 5.0MG UNKNOWN
  37. DOXAZOSIN MESYLATE [Suspect]
     Active Substance: DOXAZOSIN MESYLATE
     Dosage: 4.0MG UNKNOWN
  38. DOXAZOSIN MESYLATE [Suspect]
     Active Substance: DOXAZOSIN MESYLATE
     Dosage: 5.0MG UNKNOWN
  39. DUTASTERIDE [Suspect]
     Active Substance: DUTASTERIDE
     Dosage: 0.5 MILLIGRAM0.5MG UNKNOWN
  40. DUTASTERIDE [Suspect]
     Active Substance: DUTASTERIDE
     Dosage: 5.0MG UNKNOWN
     Route: 065
  41. DUTASTERIDE [Suspect]
     Active Substance: DUTASTERIDE
     Dosage: 10.0MG UNKNOWN
     Route: 065
  42. DUTASTERIDE [Suspect]
     Active Substance: DUTASTERIDE
     Dosage: 10.0MG UNKNOWN
  43. DUTASTERIDE [Suspect]
     Active Substance: DUTASTERIDE
     Dosage: 5.0MG UNKNOWN
  44. DUTASTERIDE [Suspect]
     Active Substance: DUTASTERIDE
     Dosage: 5.0MG UNKNOWN
  45. DUTASTERIDE [Suspect]
     Active Substance: DUTASTERIDE
     Dosage: 10.0MG UNKNOWN
     Route: 065
  46. LEVOFLOXACIN [Suspect]
     Active Substance: LEVOFLOXACIN
  47. LEVOFLOXACIN [Suspect]
     Active Substance: LEVOFLOXACIN
     Dosage: 500 MILLIGRAM, QD
  48. LEVOFLOXACIN [Suspect]
     Active Substance: LEVOFLOXACIN
     Dosage: UNKNOWN
     Route: 065
  49. LEVOFLOXACIN [Suspect]
     Active Substance: LEVOFLOXACIN
     Dosage: 500.0MG UNKNOWN
     Route: 065
  50. LEVOFLOXACIN [Suspect]
     Active Substance: LEVOFLOXACIN
     Dosage: 500.0MG UNKNOWN
     Route: 065
  51. LEVOFLOXACIN [Suspect]
     Active Substance: LEVOFLOXACIN
     Dosage: UNKNOWN
     Route: 065
  52. LEVOFLOXACIN [Suspect]
     Active Substance: LEVOFLOXACIN
     Dosage: 500.0MG UNKNOWN
  53. LEVOFLOXACIN [Suspect]
     Active Substance: LEVOFLOXACIN
     Dosage: 500.0MG UNKNOWN
     Route: 065
  54. LEVOFLOXACIN [Suspect]
     Active Substance: LEVOFLOXACIN
     Dosage: 500.0MG UNKNOWN
  55. LEVOFLOXACIN [Suspect]
     Active Substance: LEVOFLOXACIN
     Dosage: UNKNOWN
     Route: 065
  56. MOXIFLOXACIN HYDROCHLORIDE [Suspect]
     Active Substance: MOXIFLOXACIN HYDROCHLORIDE\MOXIFLOXACIN HYDROCHLORIDE MONOHYDRATE
     Dosage: UNK
  57. MOXIFLOXACIN HYDROCHLORIDE [Suspect]
     Active Substance: MOXIFLOXACIN HYDROCHLORIDE\MOXIFLOXACIN HYDROCHLORIDE MONOHYDRATE
     Dosage: UNKNOWN
  58. MOXIFLOXACIN HYDROCHLORIDE [Suspect]
     Active Substance: MOXIFLOXACIN HYDROCHLORIDE\MOXIFLOXACIN HYDROCHLORIDE MONOHYDRATE
     Dosage: UNKNOWN
  59. MOXIFLOXACIN HYDROCHLORIDE [Suspect]
     Active Substance: MOXIFLOXACIN HYDROCHLORIDE\MOXIFLOXACIN HYDROCHLORIDE MONOHYDRATE
     Dosage: UNKNOWN
  60. MOXIFLOXACIN HYDROCHLORIDE [Suspect]
     Active Substance: MOXIFLOXACIN HYDROCHLORIDE\MOXIFLOXACIN HYDROCHLORIDE MONOHYDRATE
     Dosage: UNKNOWN
  61. PREDNISONE [Suspect]
     Active Substance: PREDNISONE
     Dosage: 15 MILLIGRAM, QD
  62. PREDNISONE [Suspect]
     Active Substance: PREDNISONE
     Dosage: 10.0MG UNKNOWN
     Route: 065
  63. PREDNISONE [Suspect]
     Active Substance: PREDNISONE
     Dosage: 15.0MG UNKNOWN
  64. PREDNISONE [Suspect]
     Active Substance: PREDNISONE
     Dosage: 15.0MG UNKNOWN
  65. PREDNISONE [Suspect]
     Active Substance: PREDNISONE
     Dosage: 15.0MG UNKNOWN
  66. PREDNISONE [Suspect]
     Active Substance: PREDNISONE
     Dosage: UNKNOWN
  67. PREDNISONE [Suspect]
     Active Substance: PREDNISONE
     Dosage: UNKNOWN
  68. PREDNISONE [Suspect]
     Active Substance: PREDNISONE
     Dosage: 10.0MG UNKNOWN
  69. PREDNISONE [Suspect]
     Active Substance: PREDNISONE
     Dosage: 15.0MG UNKNOWN
  70. ALBUTEROL SULFATE [Suspect]
     Active Substance: ALBUTEROL SULFATE
     Indication: Asthma
     Dosage: UNK, PRN (100 MCG 1-2 PUFFS)
  71. ALBUTEROL SULFATE [Suspect]
     Active Substance: ALBUTEROL SULFATE
     Dosage: UNK, PRN (100 MCG 1-2 PUFFS)
     Route: 065
  72. SPIRIVA [Suspect]
     Active Substance: TIOTROPIUM BROMIDE MONOHYDRATE
     Dosage: 2 DF
  73. SPIRIVA [Suspect]
     Active Substance: TIOTROPIUM BROMIDE MONOHYDRATE
     Route: 065
  74. SPIRIVA [Suspect]
     Active Substance: TIOTROPIUM BROMIDE MONOHYDRATE
     Route: 065
  75. SPIRIVA [Suspect]
     Active Substance: TIOTROPIUM BROMIDE MONOHYDRATE
     Dosage: 2 DOSAGE FORM, QD
  76. SPIRIVA [Suspect]
     Active Substance: TIOTROPIUM BROMIDE MONOHYDRATE
     Route: 065
  77. SPIRIVA [Suspect]
     Active Substance: TIOTROPIUM BROMIDE MONOHYDRATE
     Route: 065
  78. SPIRIVA [Suspect]
     Active Substance: TIOTROPIUM BROMIDE MONOHYDRATE
     Route: 065
  79. SPIRIVA [Suspect]
     Active Substance: TIOTROPIUM BROMIDE MONOHYDRATE
     Route: 065
  80. SPIRIVA [Suspect]
     Active Substance: TIOTROPIUM BROMIDE MONOHYDRATE
     Route: 065
  81. SPIRIVA [Suspect]
     Active Substance: TIOTROPIUM BROMIDE MONOHYDRATE
     Route: 065
  82. VITAMIN D [Suspect]
     Active Substance: VITAMIN D NOS
  83. ADVAIR HFA [Suspect]
     Active Substance: FLUTICASONE PROPIONATE\SALMETEROL XINAFOATE
     Dosage: UNK
  84. ADVAIR HFA [Suspect]
     Active Substance: FLUTICASONE PROPIONATE\SALMETEROL XINAFOATE
  85. ADVAIR HFA [Suspect]
     Active Substance: FLUTICASONE PROPIONATE\SALMETEROL XINAFOATE
     Dosage: UNK
  86. ELIQUIS [Suspect]
     Active Substance: APIXABAN
     Indication: Anticoagulant therapy
     Dosage: UNKNOWN
     Route: 048
  87. ELIQUIS [Suspect]
     Active Substance: APIXABAN
     Dosage: UNKNOWN
     Route: 065
  88. TIAZAC [Suspect]
     Active Substance: DILTIAZEM HYDROCHLORIDE
     Dosage: 120.0MG UNKNOWN
  89. TIAZAC [Suspect]
     Active Substance: DILTIAZEM HYDROCHLORIDE
     Dosage: 120.0MG UNKNOWN
  90. TIAZAC [Suspect]
     Active Substance: DILTIAZEM HYDROCHLORIDE
     Dosage: 2.0DF UNKNOWN
  91. AMOXICILLIN\CLAVULANATE POTASSIUM [Suspect]
     Active Substance: AMOXICILLIN\CLAVULANATE POTASSIUM
     Dosage: UNK(875)
  92. ZENHALE [Suspect]
     Active Substance: FORMOTEROL FUMARATE\MOMETASONE FUROATE
     Dosage: 2 DOSAGE FORMS, 2 EVERY 1 DAY
  93. ZENHALE [Suspect]
     Active Substance: FORMOTEROL FUMARATE\MOMETASONE FUROATE
     Route: 065
  94. ZENHALE [Suspect]
     Active Substance: FORMOTEROL FUMARATE\MOMETASONE FUROATE
     Route: 065
  95. ZENHALE [Suspect]
     Active Substance: FORMOTEROL FUMARATE\MOMETASONE FUROATE
     Route: 065
  96. ZENHALE [Suspect]
     Active Substance: FORMOTEROL FUMARATE\MOMETASONE FUROATE
     Route: 065
  97. ZENHALE [Suspect]
     Active Substance: FORMOTEROL FUMARATE\MOMETASONE FUROATE
     Route: 065
  98. ZENHALE [Suspect]
     Active Substance: FORMOTEROL FUMARATE\MOMETASONE FUROATE
     Route: 065
  99. ZENHALE [Suspect]
     Active Substance: FORMOTEROL FUMARATE\MOMETASONE FUROATE
     Route: 065
  100. ZENHALE [Suspect]
     Active Substance: FORMOTEROL FUMARATE\MOMETASONE FUROATE
     Route: 065
  101. ZENHALE [Suspect]
     Active Substance: FORMOTEROL FUMARATE\MOMETASONE FUROATE
     Route: 065
  102. ZENHALE [Suspect]
     Active Substance: FORMOTEROL FUMARATE\MOMETASONE FUROATE
     Route: 065
  103. ZENHALE [Suspect]
     Active Substance: FORMOTEROL FUMARATE\MOMETASONE FUROATE
     Route: 065
  104. ZENHALE [Suspect]
     Active Substance: FORMOTEROL FUMARATE\MOMETASONE FUROATE
     Route: 065
  105. ZENHALE [Suspect]
     Active Substance: FORMOTEROL FUMARATE\MOMETASONE FUROATE
     Route: 065
  106. ZENHALE [Suspect]
     Active Substance: FORMOTEROL FUMARATE\MOMETASONE FUROATE
     Route: 065
  107. ZENHALE [Suspect]
     Active Substance: FORMOTEROL FUMARATE\MOMETASONE FUROATE
     Route: 065
  108. ZENHALE [Suspect]
     Active Substance: FORMOTEROL FUMARATE\MOMETASONE FUROATE
     Route: 065
  109. ZENHALE [Suspect]
     Active Substance: FORMOTEROL FUMARATE\MOMETASONE FUROATE
  110. ZENHALE [Suspect]
     Active Substance: FORMOTEROL FUMARATE\MOMETASONE FUROATE
  111. ZENHALE [Suspect]
     Active Substance: FORMOTEROL FUMARATE\MOMETASONE FUROATE
  112. ZENHALE [Suspect]
     Active Substance: FORMOTEROL FUMARATE\MOMETASONE FUROATE
  113. ERGOCALCIFEROL [Suspect]
     Active Substance: ERGOCALCIFEROL
     Dosage: UNK
  114. ERGOCALCIFEROL [Suspect]
     Active Substance: ERGOCALCIFEROL
  115. DILTIAZEM [Suspect]
     Active Substance: DILTIAZEM
     Dosage: 120 MILLIGRAM120.0MG UNKNOWN
  116. DILTIAZEM [Suspect]
     Active Substance: DILTIAZEM
     Dosage: 15.0MG UNKNOWN
  117. DILTIAZEM [Suspect]
     Active Substance: DILTIAZEM
     Dosage: UNKNOWN
  118. DILTIAZEM [Suspect]
     Active Substance: DILTIAZEM
     Dosage: 12.0MG UNKNOWN
  119. DILTIAZEM [Suspect]
     Active Substance: DILTIAZEM
     Dosage: 120.0MG UNKNOWN
  120. DILTIAZEM [Suspect]
     Active Substance: DILTIAZEM
     Dosage: 15.0MG UNKNOWN
  121. DILTIAZEM [Suspect]
     Active Substance: DILTIAZEM
     Dosage: UNKNOWN
  122. DILTIAZEM [Suspect]
     Active Substance: DILTIAZEM
     Dosage: UNKNOWN
  123. DILTIAZEM [Suspect]
     Active Substance: DILTIAZEM
     Dosage: 120.0MG UNKNOWN
  124. DILTIAZEM [Suspect]
     Active Substance: DILTIAZEM
     Dosage: 4.0MG UNKNOWN
  125. DILTIAZEM [Suspect]
     Active Substance: DILTIAZEM
     Dosage: 12.0MG UNKNOWN
  126. DILTIAZEM [Suspect]
     Active Substance: DILTIAZEM
     Dosage: 120.0MG UNKNOWN
  127. DILTIAZEM [Suspect]
     Active Substance: DILTIAZEM
     Dosage: UNKNOWN
  128. DILTIAZEM [Suspect]
     Active Substance: DILTIAZEM
     Dosage: 120.0MG UNKNOWN
  129. AMOXICILLIN\CLAVULANATE POTASSIUM [Suspect]
     Active Substance: AMOXICILLIN\CLAVULANATE POTASSIUM
     Dosage: UNK
  130. CALCIUM\VITAMIN D [Suspect]
     Active Substance: CALCIUM\VITAMIN D
     Dosage: UNK
  131. CALCIUM\VITAMIN D [Suspect]
     Active Substance: CALCIUM\VITAMIN D
     Dosage: UNK
  132. CALCIUM CITRATE [Suspect]
     Active Substance: CALCIUM CITRATE
  133. MAGNESIUM OXIDE [Suspect]
     Active Substance: MAGNESIUM OXIDE
  134. SALMETEROL XINAFOATE [Suspect]
     Active Substance: SALMETEROL XINAFOATE
  135. METFORMIN [Suspect]
     Active Substance: METFORMIN HYDROCHLORIDE
  136. ALBUTEROL [Suspect]
     Active Substance: ALBUTEROL
     Dosage: UNK
  137. ALBUTEROL [Suspect]
     Active Substance: ALBUTEROL
  138. ALBUTEROL [Suspect]
     Active Substance: ALBUTEROL
  139. ALBUTEROL [Suspect]
     Active Substance: ALBUTEROL
  140. ALBUTEROL [Suspect]
     Active Substance: ALBUTEROL
  141. DILTIAZEM HYDROCHLORIDE [Suspect]
     Active Substance: DILTIAZEM HYDROCHLORIDE
  142. VITAMIN D3 [Suspect]
     Active Substance: CHOLECALCIFEROL
  143. ALBUTEROL [Suspect]
     Active Substance: ALBUTEROL
  144. LEVOFLOXACIN [Suspect]
     Active Substance: LEVOFLOXACIN
  145. MOMETASONE FUROATE [Suspect]
     Active Substance: MOMETASONE FUROATE
  146. MAGNESIUM OXIDE [Suspect]
     Active Substance: MAGNESIUM OXIDE
  147. FORMOTEROL FUMARATE [Suspect]
     Active Substance: FORMOTEROL FUMARATE
  148. FORMOTEROL FUMARATE\MOMETASONE FUROATE [Suspect]
     Active Substance: FORMOTEROL FUMARATE\MOMETASONE FUROATE
  149. FLUTICASONE PROPIONATE\SALMETEROL XINAFOATE [Suspect]
     Active Substance: FLUTICASONE PROPIONATE\SALMETEROL XINAFOATE
  150. FLUTICASONE PROPIONATE\SALMETEROL XINAFOATE [Suspect]
     Active Substance: FLUTICASONE PROPIONATE\SALMETEROL XINAFOATE
  151. AMOXICILLIN\CLAVULANATE POTASSIUM [Suspect]
     Active Substance: AMOXICILLIN\CLAVULANATE POTASSIUM
  152. CALCIUM CARBONATE\CHOLECALCIFEROL [Suspect]
     Active Substance: CALCIUM CARBONATE\CHOLECALCIFEROL
  153. CALCIUM CARBONATE [Suspect]
     Active Substance: CALCIUM CARBONATE
  154. AMOXICILLIN\CLAVULANATE POTASSIUM [Suspect]
     Active Substance: AMOXICILLIN\CLAVULANATE POTASSIUM
  155. APIXABAN [Suspect]
     Active Substance: APIXABAN
     Dosage: UNK
  156. APIXABAN [Suspect]
     Active Substance: APIXABAN
     Dosage: UNK
  157. APIXABAN [Suspect]
     Active Substance: APIXABAN
     Dosage: UNK
  158. APIXABAN [Suspect]
     Active Substance: APIXABAN
     Dosage: UNK
  159. APIXABAN [Suspect]
     Active Substance: APIXABAN
     Dosage: UNK
  160. APIXABAN [Suspect]
     Active Substance: APIXABAN
     Dosage: UNK
  161. APIXABAN [Suspect]
     Active Substance: APIXABAN
     Dosage: UNK
  162. ALBUTEROL SULFATE [Suspect]
     Active Substance: ALBUTEROL SULFATE
  163. CALCIUM [Suspect]
     Active Substance: CALCIUM
  164. CALCIUM GLYCINATE [Suspect]
     Active Substance: CALCIUM GLYCINATE
  165. CALCIUM LACTATE [Suspect]
     Active Substance: CALCIUM LACTATE
  166. AMOXICILLIN [Suspect]
     Active Substance: AMOXICILLIN
  167. ROSUVASTATIN CALCIUM [Concomitant]
     Active Substance: ROSUVASTATIN CALCIUM
     Dosage: 20 MILLIGRAM20.0MG UNKNOWN
  168. ROSUVASTATIN CALCIUM [Concomitant]
     Active Substance: ROSUVASTATIN CALCIUM
     Dosage: UNKNOWN
     Route: 065
  169. ROSUVASTATIN CALCIUM [Concomitant]
     Active Substance: ROSUVASTATIN CALCIUM
     Dosage: 15.0MG UNKNOWN
     Route: 065
  170. ROSUVASTATIN CALCIUM [Concomitant]
     Active Substance: ROSUVASTATIN CALCIUM
     Dosage: UNKNOWN
     Route: 065
  171. ROSUVASTATIN CALCIUM [Concomitant]
     Active Substance: ROSUVASTATIN CALCIUM
     Dosage: UNKNOWN
     Route: 065
  172. ROSUVASTATIN CALCIUM [Concomitant]
     Active Substance: ROSUVASTATIN CALCIUM
     Dosage: UNKNOWN
     Route: 065
  173. ROSUVASTATIN CALCIUM [Concomitant]
     Active Substance: ROSUVASTATIN CALCIUM
     Dosage: UNKNOWN
     Route: 065
  174. ROSUVASTATIN CALCIUM [Concomitant]
     Active Substance: ROSUVASTATIN CALCIUM
     Dosage: UNKNOWN
     Route: 065
  175. ROSUVASTATIN CALCIUM [Concomitant]
     Active Substance: ROSUVASTATIN CALCIUM
     Dosage: UNKNOWN
     Route: 065
  176. ROSUVASTATIN CALCIUM [Concomitant]
     Active Substance: ROSUVASTATIN CALCIUM
     Dosage: UNKNOWN
     Route: 065
  177. ROSUVASTATIN CALCIUM [Concomitant]
     Active Substance: ROSUVASTATIN CALCIUM
     Dosage: UNKNOWN
     Route: 065
  178. ROSUVASTATIN CALCIUM [Concomitant]
     Active Substance: ROSUVASTATIN CALCIUM
     Dosage: UNKNOWN
     Route: 065
  179. ROSUVASTATIN CALCIUM [Concomitant]
     Active Substance: ROSUVASTATIN CALCIUM
     Dosage: UNKNOWN
     Route: 065

REACTIONS (35)
  - Arteriosclerosis coronary artery [Unknown]
  - Pulmonary embolism [Unknown]
  - Asthma [Unknown]
  - Full blood count abnormal [Unknown]
  - Condition aggravated [Unknown]
  - Conjunctivitis allergic [Unknown]
  - Dust allergy [Unknown]
  - Hypoxia [Unknown]
  - Mite allergy [Unknown]
  - Mycotic allergy [Unknown]
  - Productive cough [Unknown]
  - Spirometry abnormal [Unknown]
  - Wheezing [Unknown]
  - Nodule [Unknown]
  - Normochromic normocytic anaemia [Unknown]
  - Sleep disorder due to a general medical condition [Unknown]
  - Thrombosis [Unknown]
  - Dyspnoea [Unknown]
  - Therapeutic product effect incomplete [Unknown]
  - Loss of personal independence in daily activities [Unknown]
  - Anxiety [Unknown]
  - Arteriosclerosis [Unknown]
  - Eosinophilic granulomatosis with polyangiitis [Unknown]
  - Haemoptysis [Unknown]
  - Hypothyroidism [Unknown]
  - Skin exfoliation [Unknown]
  - Lung disorder [Unknown]
  - Neuritis [Unknown]
  - Neurological symptom [Unknown]
  - Obstructive airways disorder [Unknown]
  - Pain in extremity [Unknown]
  - Pulmonary alveolar haemorrhage [Unknown]
  - Pulmonary vasculitis [Unknown]
  - Respiratory symptom [Unknown]
  - Pulmonary fibrosis [Unknown]
